FAERS Safety Report 13427231 (Version 5)
Quarter: 2017Q4

REPORT INFORMATION
  Report Type: Report from Study
  Country: IQ (occurrence: IQ)
  Receive Date: 20170411
  Receipt Date: 20171025
  Transmission Date: 20180320
  Serious: Yes (Other)
  Sender: FDA-Public Use
  Company Number: PHHY2017IQ050604

PATIENT
  Sex: Male

DRUGS (4)
  1. GLIVEC [Suspect]
     Active Substance: IMATINIB MESYLATE
     Indication: CHRONIC MYELOID LEUKAEMIA
     Dosage: 400 MG, QD
     Route: 048
     Dates: start: 201407
  2. ASPIRIN. [Concomitant]
     Active Substance: ASPIRIN
     Indication: PRODUCT USED FOR UNKNOWN INDICATION
     Route: 048
  3. NEXIUM [Concomitant]
     Active Substance: ESOMEPRAZOLE MAGNESIUM
     Indication: PRODUCT USED FOR UNKNOWN INDICATION
     Route: 065
  4. LEVOFLOXACIN. [Concomitant]
     Active Substance: LEVOFLOXACIN
     Indication: PRODUCT USED FOR UNKNOWN INDICATION
     Route: 065

REACTIONS (13)
  - Aphasia [Unknown]
  - Mental disorder [Unknown]
  - General physical health deterioration [Unknown]
  - Oedema [Not Recovered/Not Resolved]
  - Movement disorder [Not Recovered/Not Resolved]
  - Insomnia [Not Recovered/Not Resolved]
  - Cerebrovascular accident [Recovering/Resolving]
  - Fall [Unknown]
  - Hypersensitivity [Unknown]
  - Urinary tract infection [Not Recovered/Not Resolved]
  - Asphyxia [Unknown]
  - Decubitus ulcer [Unknown]
  - Hypophagia [Unknown]

NARRATIVE: CASE EVENT DATE: 201612
